FAERS Safety Report 10301672 (Version 1)
Quarter: 2014Q3

REPORT INFORMATION
  Report Type: Spontaneous
  Country: US (occurrence: None)
  Receive Date: 20140709
  Receipt Date: 20140709
  Transmission Date: 20150326
  Serious: No
  Sender: FDA-Public Use
  Company Number: None

PATIENT
  Age: 53 Year
  Sex: Female
  Weight: 65.32 kg

DRUGS (1)
  1. VIVELLE DOT [Suspect]
     Active Substance: ESTRADIOL

REACTIONS (2)
  - Menopausal symptoms [None]
  - Drug ineffective [None]

NARRATIVE: CASE EVENT DATE: 20140701
